FAERS Safety Report 11717486 (Version 1)
Quarter: 2015Q4

REPORT INFORMATION
  Report Type: Spontaneous
  Country: US (occurrence: US)
  Receive Date: 20151110
  Receipt Date: 20151110
  Transmission Date: 20160304
  Serious: Yes (Other)
  Sender: FDA-Public Use
  Company Number: US-AMGEN-USASP2015117483

PATIENT
  Age: 44 Year
  Sex: Female

DRUGS (2)
  1. EPOGEN [Suspect]
     Active Substance: ERYTHROPOIETIN
     Indication: ANAEMIA
     Dosage: 10,000 UNITS/ML, THRICE WEEKLY
     Route: 042
  2. DARBEPOETIN ALFA [Suspect]
     Active Substance: DARBEPOETIN ALFA
     Indication: PRODUCT USED FOR UNKNOWN INDICATION
     Dosage: 100 MUG/0.5ML, UNK
     Route: 065

REACTIONS (9)
  - Pruritus generalised [Unknown]
  - Urticaria [Unknown]
  - Lip swelling [Unknown]
  - Blood pressure decreased [Unknown]
  - Skin test positive [Unknown]
  - Eye irritation [Unknown]
  - Anaphylactic shock [Unknown]
  - Swollen tongue [Unknown]
  - Dyspnoea [Unknown]
